FAERS Safety Report 12850608 (Version 2)
Quarter: 2016Q4

REPORT INFORMATION
  Report Type: Spontaneous
  Country: US (occurrence: US)
  Receive Date: 20161014
  Receipt Date: 20161230
  Transmission Date: 20170207
  Serious: Yes (Hospitalization, Other)
  Sender: FDA-Public Use
  Company Number: US-SHIRE-US201614151

PATIENT
  Age: 18 Year
  Sex: Female
  Weight: 54 kg

DRUGS (29)
  1. NATPARA (PARATHYROID HORMONE) [Suspect]
     Active Substance: PARATHYROID HORMONE
     Indication: PRODUCT USED FOR UNKNOWN INDICATION
     Dosage: UNK, UNKNOWN
     Route: 058
     Dates: start: 20160830, end: 20160901
  2. NATPARA (PARATHYROID HORMONE) [Suspect]
     Active Substance: PARATHYROID HORMONE
     Dosage: 50 ?G, UNK
     Dates: start: 20160903, end: 20160930
  3. CALCITRIOL. [Concomitant]
     Active Substance: CALCITRIOL
     Dosage: UNK
     Dates: start: 20160920
  4. CALCITRATE [Concomitant]
     Active Substance: CALCIUM CITRATE
     Dosage: UNK UNK, 3X/DAY:TID
     Route: 065
     Dates: start: 20160902, end: 20160904
  5. CALCITRATE [Concomitant]
     Active Substance: CALCIUM CITRATE
     Dosage: 1300 DF, 3X/DAY:TID
     Route: 065
     Dates: start: 20160914, end: 20160917
  6. TUMS                               /00193601/ [Concomitant]
     Active Substance: CALCIUM CARBONATE\MAGNESIUM CARBONATE\MAGNESIUM TRISILICATE
     Indication: PRODUCT USED FOR UNKNOWN INDICATION
     Dosage: 500 MG, 2X/DAY:BID
     Route: 065
     Dates: start: 20160922, end: 20160925
  7. TUMS                               /00193601/ [Concomitant]
     Active Substance: CALCIUM CARBONATE\MAGNESIUM CARBONATE\MAGNESIUM TRISILICATE
     Dosage: 1 TUMS, 2X/DAY:BID
     Route: 065
     Dates: start: 20161002, end: 20161013
  8. CALCITRATE [Concomitant]
     Active Substance: CALCIUM CITRATE
     Indication: PRODUCT USED FOR UNKNOWN INDICATION
     Dosage: 1400 MG, 4X/DAY:QID
     Route: 048
     Dates: start: 20160830, end: 20160901
  9. CALCITRATE [Concomitant]
     Active Substance: CALCIUM CITRATE
     Dosage: 2 PILLS, 3X/DAY:TID
     Route: 065
     Dates: start: 20160921, end: 20160921
  10. CALCITRATE [Concomitant]
     Active Substance: CALCIUM CITRATE
     Dosage: UNK UNK, 3X/DAY:TID
     Route: 065
     Dates: start: 20160906, end: 20160906
  11. CALCITRATE [Concomitant]
     Active Substance: CALCIUM CITRATE
     Dosage: UNK
     Route: 065
     Dates: start: 20160905, end: 20160905
  12. CALCIUM [Concomitant]
     Active Substance: CALCIUM
     Indication: PRODUCT USED FOR UNKNOWN INDICATION
     Dosage: UNK UNK, UNKNOWN
     Route: 065
     Dates: start: 20160831, end: 20160831
  13. CALCIUM [Concomitant]
     Active Substance: CALCIUM
     Dosage: 650 MG, 2X/DAY:BID
     Route: 065
     Dates: start: 20160919, end: 20160919
  14. CALCITRIOL. [Concomitant]
     Active Substance: CALCITRIOL
     Dosage: 1300 DF, 3X/DAY:TID
     Route: 065
     Dates: start: 20160917, end: 20160917
  15. CALCITRIOL. [Concomitant]
     Active Substance: CALCITRIOL
     Dosage: 1300 DF, 3X/DAY:TID
     Route: 065
     Dates: start: 20160919, end: 20160919
  16. TUMS                               /00193601/ [Concomitant]
     Active Substance: CALCIUM CARBONATE\MAGNESIUM CARBONATE\MAGNESIUM TRISILICATE
     Dosage: 2 TUMS, Q6HRS
     Route: 065
     Dates: start: 20161107
  17. CALCITRIOL. [Concomitant]
     Active Substance: CALCITRIOL
     Dosage: UNK UNK, 1X/DAY:QD
     Route: 065
     Dates: start: 20160905, end: 20160905
  18. CALCITRIOL. [Concomitant]
     Active Substance: CALCITRIOL
     Dosage: UNK UNK, 2X/DAY:BID
     Route: 065
     Dates: start: 20160906, end: 20160906
  19. CALCITRIOL. [Concomitant]
     Active Substance: CALCITRIOL
     Dosage: 2 ?G AM, 1 ?G PM
     Route: 065
     Dates: start: 20160914, end: 20160916
  20. VITAMIN D                          /00107901/ [Concomitant]
     Active Substance: ERGOCALCIFEROL
     Dosage: 500 MG, UNK
     Dates: start: 20160919
  21. TUMS                               /00193601/ [Concomitant]
     Active Substance: CALCIUM CARBONATE\MAGNESIUM CARBONATE\MAGNESIUM TRISILICATE
     Dosage: 500 MG, 3X/DAY:TID (2 TUMS AM 1 TUM PM)
     Dates: start: 20160926, end: 20160926
  22. CALCITRIOL. [Concomitant]
     Active Substance: CALCITRIOL
     Dosage: UNK UNK, 2X/DAY:BID
     Route: 065
     Dates: start: 20160904, end: 20160904
  23. VITAMIN D                          /00107901/ [Concomitant]
     Active Substance: ERGOCALCIFEROL
     Indication: PRODUCT USED FOR UNKNOWN INDICATION
     Dosage: UNK UNK, UNKNOWN
     Route: 065
     Dates: start: 20160831, end: 20160831
  24. TUMS                               /00193601/ [Concomitant]
     Active Substance: CALCIUM CARBONATE\MAGNESIUM CARBONATE\MAGNESIUM TRISILICATE
     Dosage: 1 TUMS, 1X/DAY:QD
     Route: 065
     Dates: start: 20160927, end: 20160927
  25. CALCITRIOL. [Concomitant]
     Active Substance: CALCITRIOL
     Indication: PRODUCT USED FOR UNKNOWN INDICATION
     Dosage: 2 ?G AM, 1 ?G PM
     Route: 048
     Dates: start: 20160830, end: 20160831
  26. CALCITRIOL. [Concomitant]
     Active Substance: CALCITRIOL
     Dosage: 0.5 DF, 2X/DAY:BID
     Dates: start: 20160901, end: 20160902
  27. VITAMIN D                          /00107901/ [Concomitant]
     Active Substance: ERGOCALCIFEROL
     Dosage: 1000 IU, UNK
     Route: 065
     Dates: start: 20160826, end: 20160829
  28. TUMS                               /00193601/ [Concomitant]
     Active Substance: CALCIUM CARBONATE\MAGNESIUM CARBONATE\MAGNESIUM TRISILICATE
     Dosage: 1 TUMS, 2X/DAY:BID
     Route: 065
     Dates: start: 20160928, end: 20160929
  29. CALCIUM [Concomitant]
     Active Substance: CALCIUM
     Dosage: 2 PILLS 3X/DAY:TID
     Route: 065
     Dates: start: 20160920, end: 20160920

REACTIONS (5)
  - Haematochezia [Unknown]
  - Diarrhoea [Recovered/Resolved]
  - Drug dose omission [Unknown]
  - Muscle spasms [Unknown]
  - Gastrointestinal pain [Unknown]

NARRATIVE: CASE EVENT DATE: 20160830
